FAERS Safety Report 22595923 (Version 1)
Quarter: 2023Q2

REPORT INFORMATION
  Report Type: Spontaneous
  Country: US (occurrence: US)
  Receive Date: 20230613
  Receipt Date: 20230613
  Transmission Date: 20230722
  Serious: No
  Sender: FDA-Public Use
  Company Number: US-INTERCEPT-PM2022002177

PATIENT
  Sex: Female

DRUGS (5)
  1. OCALIVA [Suspect]
     Active Substance: OBETICHOLIC ACID
     Indication: Primary biliary cholangitis
     Dosage: 5 MILLIGRAM, QD
     Route: 048
     Dates: start: 20200620, end: 2020
  2. OCALIVA [Suspect]
     Active Substance: OBETICHOLIC ACID
     Dosage: 10 MILLIGRAM, QD
     Route: 048
     Dates: start: 202008, end: 202008
  3. OCALIVA [Suspect]
     Active Substance: OBETICHOLIC ACID
     Dosage: 5 MILLIGRAM, QD
     Route: 048
     Dates: start: 202008, end: 2020
  4. OCALIVA [Suspect]
     Active Substance: OBETICHOLIC ACID
     Dosage: 10 MILLIGRAM, QD
     Route: 048
     Dates: start: 2020, end: 20221205
  5. URSODIOL [Concomitant]
     Active Substance: URSODIOL
     Dosage: UNK
     Dates: start: 2016

REACTIONS (5)
  - Hepatic pain [Unknown]
  - Stress [Unknown]
  - Blood alkaline phosphatase abnormal [Unknown]
  - Therapy interrupted [Not Recovered/Not Resolved]
  - Insurance issue [Not Recovered/Not Resolved]

NARRATIVE: CASE EVENT DATE: 20220101
